FAERS Safety Report 10361688 (Version 2)
Quarter: 2014Q3

REPORT INFORMATION
  Report Type: Spontaneous
  Country: GB (occurrence: GB)
  Receive Date: 20140805
  Receipt Date: 20140805
  Transmission Date: 20150326
  Serious: Yes (Other)
  Sender: FDA-Public Use
  Company Number: GB-009507513-0807GBR00021

PATIENT
  Sex: Female

DRUGS (5)
  1. TIMOLOL MALEATE. [Suspect]
     Active Substance: TIMOLOL MALEATE
     Route: 047
     Dates: start: 2007
  2. LIQUIFILM TEARS [Concomitant]
     Dosage: 1 DF, Q4H
     Route: 047
     Dates: start: 2007
  3. VISCOTEARS [Suspect]
     Active Substance: CARBOMER
     Dosage: UNK
     Route: 047
     Dates: start: 20080325
  4. DIAZEPAM. [Concomitant]
     Active Substance: DIAZEPAM
     Dosage: 0.5 DF, UNK
     Route: 048
  5. VISCOTEARS [Suspect]
     Active Substance: CARBOMER
     Indication: DRY EYE
     Route: 047
     Dates: start: 20070830, end: 20080325

REACTIONS (3)
  - Visual impairment [Unknown]
  - Eye movement disorder [Unknown]
  - Anxiety [Unknown]

NARRATIVE: CASE EVENT DATE: 2007
